FAERS Safety Report 8991309 (Version 1)
Quarter: 2012Q4

REPORT INFORMATION
  Report Type: Report from Study
  Country: CA (occurrence: CA)
  Receive Date: 20121231
  Receipt Date: 20121231
  Transmission Date: 20130627
  Serious: Yes (Other)
  Sender: FDA-Public Use
  Company Number: CA-ROCHE-1172464

PATIENT
  Age: 42 Year
  Sex: Female
  Weight: 114 kg

DRUGS (6)
  1. OMALIZUMAB [Suspect]
     Indication: ASTHMA
     Dosage: 300 mg, Q2W
     Route: 058
     Dates: start: 20090402
  2. OMALIZUMAB [Suspect]
     Dosage: 300 mg, Q2W
     Route: 058
     Dates: start: 20090430
  3. OMALIZUMAB [Suspect]
     Dosage: UNK
     Route: 065
     Dates: start: 20090611
  4. OMALIZUMAB [Suspect]
     Dosage: 300 mg, 2/week
     Route: 058
     Dates: start: 20090709, end: 20090709
  5. VENTOLIN [Concomitant]
     Indication: PRODUCT USED FOR UNKNOWN INDICATION
  6. PREDNISONE [Concomitant]

REACTIONS (9)
  - Blood pressure increased [Unknown]
  - Hypersensitivity [Unknown]
  - Influenza like illness [Unknown]
  - Stress [Unknown]
  - Drug ineffective [Unknown]
  - Throat tightness [Unknown]
  - Nervousness [Unknown]
  - Malaise [Unknown]
  - Respiratory rate increased [Unknown]
